FAERS Safety Report 18712162 (Version 11)
Quarter: 2021Q3

REPORT INFORMATION
  Report Type: Report from Study
  Country: None (occurrence: CO)
  Receive Date: 20210107
  Receipt Date: 20210810
  Transmission Date: 20211014
  Serious: Yes (Hospitalization, Other)
  Sender: FDA-Public Use
  Company Number: CO-ABBVIE-21K-036-3717885-00

PATIENT
  Age: 47 Year
  Sex: Female
  Weight: 40 kg

DRUGS (2)
  1. HUMIRA [Suspect]
     Active Substance: ADALIMUMAB
     Indication: RHEUMATOID ARTHRITIS
     Route: 058
     Dates: start: 20170520
  2. HUMIRA [Suspect]
     Active Substance: ADALIMUMAB
     Indication: RHEUMATOID ARTHRITIS
     Route: 058
     Dates: end: 20201210

REACTIONS (16)
  - Respiratory disorder [Recovering/Resolving]
  - COVID-19 [Recovered/Resolved]
  - Decreased appetite [Not Recovered/Not Resolved]
  - Agitation [Recovering/Resolving]
  - Immunodeficiency [Unknown]
  - Malaise [Not Recovered/Not Resolved]
  - Influenza [Not Recovered/Not Resolved]
  - Pulmonary mass [Not Recovered/Not Resolved]
  - Malnutrition [Not Recovered/Not Resolved]
  - Asthenia [Not Recovered/Not Resolved]
  - Respiratory distress [Not Recovered/Not Resolved]
  - Immune system disorder [Not Recovered/Not Resolved]
  - Throat irritation [Not Recovered/Not Resolved]
  - Influenza [Recovered/Resolved]
  - Pneumonia [Not Recovered/Not Resolved]
  - Nasopharyngitis [Not Recovered/Not Resolved]

NARRATIVE: CASE EVENT DATE: 202012
